FAERS Safety Report 16137367 (Version 1)
Quarter: 2019Q1

REPORT INFORMATION
  Report Type: Spontaneous
  Country: DE (occurrence: DE)
  Receive Date: 20190330
  Receipt Date: 20190330
  Transmission Date: 20190418
  Serious: Yes (Hospitalization, Other)
  Sender: FDA-Public Use
  Company Number: DE-AUROBINDO-AUR-APL-2019-016511

PATIENT

DRUGS (25)
  1. CAPECITABINE. [Suspect]
     Active Substance: CAPECITABINE
     Dosage: 2000 MILLIGRAM, EVERY 3 WEEKS
     Route: 048
     Dates: start: 20161004, end: 20161017
  2. OXALIPLATIN. [Suspect]
     Active Substance: OXALIPLATIN
     Indication: COLORECTAL CANCER METASTATIC
     Dosage: 167 MILLIGRAM, EVERY 3 WEEKS
     Route: 042
     Dates: start: 20160413, end: 20160504
  3. CAPECITABINE. [Suspect]
     Active Substance: CAPECITABINE
     Dosage: 2500 MILLIGRAM, EVERY 3 WEEKS
     Route: 048
     Dates: start: 20160118
  4. BEVACIZUMAB. [Suspect]
     Active Substance: BEVACIZUMAB
     Indication: COLORECTAL CANCER METASTATIC
     Dosage: 615 MILLIGRAM
     Route: 042
     Dates: start: 20150924, end: 20150924
  5. ASPIRIN. [Concomitant]
     Active Substance: ASPIRIN
     Indication: PRODUCT USED FOR UNKNOWN INDICATION
     Dosage: 100 MILLIGRAM, ONCE A DAY
     Route: 048
     Dates: start: 2001
  6. FOSINORM [Concomitant]
     Indication: HYPERTENSION
     Dosage: 0.5 DOSAGE FORM, ONCE A DAY
     Route: 048
     Dates: start: 2001
  7. GLIMEPIRID [Concomitant]
     Active Substance: GLIMEPIRIDE
     Indication: DIABETES MELLITUS
     Dosage: 2 MILLIGRAM, ONCE A DAY
     Route: 048
     Dates: start: 2011, end: 20151127
  8. IRINOTECAN [Concomitant]
     Active Substance: IRINOTECAN
     Dosage: 220 MILLIGRAM, EVERY 3 WEEKS
     Route: 042
     Dates: start: 20160208, end: 20160208
  9. GRANISETRON [Concomitant]
     Active Substance: GRANISETRON
     Indication: NAUSEA
     Dosage: 1 MILLIGRAM, DAY 1 BEFORE CHEMOTHERAPY
     Route: 042
     Dates: start: 20160413
  10. CAPECITABINE. [Suspect]
     Active Substance: CAPECITABINE
     Indication: COLORECTAL CANCER METASTATIC
     Dosage: 3000 MILLIGRAM, EVERY 3 WEEKS
     Route: 048
     Dates: start: 20150924, end: 20151118
  11. FORTECORTIN [Concomitant]
     Active Substance: DEXAMETHASONE
     Indication: NAUSEA
  12. ENOXAPARIN [Concomitant]
     Active Substance: ENOXAPARIN
     Indication: THROMBOSIS
     Dosage: 0.4 MILLILITER, ONCE A DAY
     Route: 058
     Dates: start: 20151122, end: 20151202
  13. DEXAMETHASON [Concomitant]
     Active Substance: DEXAMETHASONE
     Indication: NAUSEA
     Dosage: 8 MILLIGRAM, DAY 1 BEFORE CHEMOTHERAPY
     Route: 042
     Dates: start: 20160413, end: 20161004
  14. OXALIPLATIN. [Suspect]
     Active Substance: OXALIPLATIN
     Dosage: 120 MILLIGRAM, EVERY 3 WEEKS
     Route: 042
     Dates: start: 20160609, end: 20160609
  15. CAPECITABINE. [Suspect]
     Active Substance: CAPECITABINE
     Dosage: 2000 MILLIGRAM, EVERY 3 WEEKS
     Route: 048
     Dates: start: 20160609, end: 20160622
  16. KEVATRIL [Concomitant]
     Active Substance: GRANISETRON HYDROCHLORIDE
     Indication: NAUSEA
     Dosage: 1 DOSAGE FORM, EVERY 3 WEEKS
     Route: 042
     Dates: start: 20150924, end: 20160321
  17. FORTECORTIN [Concomitant]
     Active Substance: DEXAMETHASONE
     Indication: VOMITING
     Dosage: 10 MILLIGRAM, EVERY 3 WEEKS
     Route: 042
     Dates: start: 20150924, end: 20160321
  18. DIMENHYDRINATE. [Concomitant]
     Active Substance: DIMENHYDRINATE
     Indication: VOMITING
     Dosage: UNK, 1 AMPOLE
     Route: 042
     Dates: start: 20151126, end: 20151127
  19. BEVACIZUMAB. [Suspect]
     Active Substance: BEVACIZUMAB
     Dosage: 615 MILLIGRAM, EVERY 3 WEEKS
     Route: 042
     Dates: start: 20151105
  20. ATROPIN [Concomitant]
     Active Substance: ATROPINE
     Indication: CHOLINERGIC SYNDROME
     Dosage: 0.25 MILLIGRAM, EVERY 3 WEEKS
     Route: 058
     Dates: start: 20150924, end: 20160321
  21. OXALIPLATIN. [Suspect]
     Active Substance: OXALIPLATIN
     Dosage: 119.6 MILLIGRAM, EVERY 3 WEEKS
     Route: 042
     Dates: start: 20161004, end: 20161004
  22. AMLODIPIN [Concomitant]
     Active Substance: AMLODIPINE BESYLATE
     Indication: HYPERTENSION
     Dosage: 7.5 MILLIGRAM, ONCE A DAY
     Route: 048
     Dates: start: 201407
  23. IRINOTECAN [Concomitant]
     Active Substance: IRINOTECAN
     Indication: COLORECTAL CANCER
     Dosage: 323.2 MILLIGRAM, EVERY 3 WEEKS
     Route: 042
     Dates: start: 20150924, end: 20151105
  24. IRINOTECAN [Concomitant]
     Active Substance: IRINOTECAN
     Dosage: 220.8 MILLIGRAM, EVERY 3 WEEKS, MOST RECENT DOSE RECEIVED ON 21/MAR/2016
     Route: 042
     Dates: start: 20160229
  25. SIMVASTATIN. [Concomitant]
     Active Substance: SIMVASTATIN
     Indication: HYPERCHOLESTEROLAEMIA
     Dosage: 10 MILLIGRAM, ONCE A DAY
     Route: 048
     Dates: start: 2015, end: 20151119

REACTIONS (9)
  - Circulatory collapse [Recovered/Resolved]
  - Weight decreased [Not Recovered/Not Resolved]
  - Proteinuria [Not Recovered/Not Resolved]
  - Decreased appetite [Recovered/Resolved]
  - Vomiting [Recovered/Resolved]
  - Diarrhoea [Recovered/Resolved]
  - Hypokalaemia [Recovered/Resolved]
  - Prothrombin time prolonged [Recovered/Resolved]
  - Dehydration [Recovered/Resolved]

NARRATIVE: CASE EVENT DATE: 20150925
